FAERS Safety Report 9546246 (Version 1)
Quarter: 2013Q3

REPORT INFORMATION
  Report Type: Spontaneous
  Country: US (occurrence: US)
  Receive Date: 20130923
  Receipt Date: 20130923
  Transmission Date: 20140515
  Serious: No
  Sender: FDA-Public Use
  Company Number: US-GLAXOSMITHKLINE-A1023509A

PATIENT
  Age: 83 Year
  Sex: Female

DRUGS (1)
  1. ABREVA [Suspect]
     Indication: PRODUCT USED FOR UNKNOWN INDICATION
     Dates: start: 20130509, end: 20130512

REACTIONS (9)
  - Application site haemorrhage [Unknown]
  - Application site scab [Not Recovered/Not Resolved]
  - Oral pain [Unknown]
  - Lip oedema [Not Recovered/Not Resolved]
  - Oral discomfort [Unknown]
  - Application site pruritus [Unknown]
  - Pruritus [Recovered/Resolved]
  - Malaise [Unknown]
  - Headache [Unknown]
